FAERS Safety Report 5094786-3 (Version None)
Quarter: 2006Q3

REPORT INFORMATION
  Report Type: 
  Country: None (occurrence: None)
  Receive Date: 20060731
  Receipt Date: 20060413
  Transmission Date: 20061208
  Serious: No
  Sender: FDA-Public Use
  Company Number: 2006PV012023

PATIENT
  Age: 41 Year
  Sex: Female
  Weight: 134.2647 kg

DRUGS (6)
  1. BYETTA [Suspect]
     Indication: DIABETES MELLITUS NON-INSULIN-DEPENDENT
     Dosage: 5 MCG;BID;SC
     Route: 058
     Dates: start: 20060328
  2. LANTUS [Concomitant]
  3. AVANDAMET [Concomitant]
  4. LOTREL [Concomitant]
  5. DYAZIDE [Concomitant]
  6. LIPITOR [Concomitant]

REACTIONS (5)
  - CONDITION AGGRAVATED [None]
  - DECREASED APPETITE [None]
  - NAUSEA [None]
  - OEDEMA PERIPHERAL [None]
  - VOMITING [None]
